FAERS Safety Report 4347479-1 (Version None)
Quarter: 2004Q2

REPORT INFORMATION
  Report Type: 
  Country: None (occurrence: None)
  Receive Date: 20040421
  Receipt Date: 20040205
  Transmission Date: 20050107
  Serious: Yes (Other)
  Sender: FDA-Public Use
  Company Number: 2003125938

PATIENT
  Age: 25 Year
  Sex: Female
  Weight: 58.9676 kg

DRUGS (1)
  1. RELPAX [Suspect]
     Indication: MIGRAINE
     Dosage: 40 MG (ONCE), ORAL
     Route: 048
     Dates: start: 20030923

REACTIONS (7)
  - ADVERSE DRUG REACTION [None]
  - AKINESIA [None]
  - ASTHENIA [None]
  - COMMUNICATION DISORDER [None]
  - DEPRESSED LEVEL OF CONSCIOUSNESS [None]
  - MIGRAINE [None]
  - MOTOR DYSFUNCTION [None]
